FAERS Safety Report 6081180-1 (Version None)
Quarter: 2009Q1

REPORT INFORMATION
  Report Type: 
  Country: None (occurrence: None)
  Receive Date: 20090213
  Receipt Date: 20090203
  Transmission Date: 20090719
  Serious: Yes (Disabling)
  Sender: FDA-Public Use
  Company Number: 08AR001113

PATIENT
  Age: 67 Year
  Sex: Male

DRUGS (11)
  1. VALPROIC ACID [Suspect]
     Indication: ABNORMAL BEHAVIOUR
     Dosage: 500 MG, BID, ORAL
     Route: 048
  2. VALPROIC ACID [Suspect]
     Indication: COGNITIVE DISORDER
     Dosage: 500 MG, BID, ORAL
     Route: 048
  3. VALPROIC ACID [Suspect]
     Indication: PSYCHIATRIC SYMPTOM
     Dosage: 500 MG, BID, ORAL
     Route: 048
  4. PAROXETINE HCL [Suspect]
     Indication: ANXIETY
     Dosage: 10 MG, QD
  5. PAROXETINE HCL [Suspect]
     Indication: DEPRESSION
     Dosage: 10 MG, QD
  6. OLANZAPINE [Concomitant]
  7. CLONAZEPAM [Concomitant]
  8. RIVASTIGMINE TARTRATE [Concomitant]
  9. CLOZAPINE [Concomitant]
  10. LORAZEPAM [Concomitant]
  11. TORFENADINE [Concomitant]

REACTIONS (4)
  - FACE INJURY [None]
  - FALL [None]
  - PARKINSONISM [None]
  - PLEUROTHOTONUS [None]
